FAERS Safety Report 8130366-0 (Version None)
Quarter: 2012Q1

REPORT INFORMATION
  Report Type: 
  Country: None (occurrence: None)
  Receive Date: 20120210
  Receipt Date: 20120207
  Transmission Date: 20120608
  Serious: Yes (Other)
  Sender: FDA-Public Use
  Company Number: PHHY2010JP74769

PATIENT
  Sex: Female
  Weight: 56 kg

DRUGS (14)
  1. EXJADE [Suspect]
     Indication: MYELODYSPLASTIC SYNDROME
     Dosage: 1000 MG DAILY
     Route: 048
     Dates: start: 20100701, end: 20100901
  2. EBASTINE [Concomitant]
     Dosage: 10 MG, UNK
     Route: 048
     Dates: start: 20100701
  3. DAIPHEN [Concomitant]
     Dosage: 1 MG, UNK
     Route: 048
     Dates: start: 20100701
  4. DIOVAN [Concomitant]
     Dosage: 80 MG, UNK
     Route: 048
     Dates: start: 20100701
  5. ATENOLOL [Concomitant]
     Dosage: 50 MG, UNK
     Route: 048
     Dates: start: 20100701
  6. MAGMITT [Concomitant]
     Dosage: 990 MG, UNK
     Route: 048
     Dates: start: 20100701
  7. FUROSEMIDE [Concomitant]
     Dosage: 40 MG, UNK
     Route: 048
     Dates: start: 20100701
  8. FAMOSTAGINE [Concomitant]
     Dosage: 40 MG, UNK
     Route: 048
     Dates: start: 20100701
  9. CALFINA [Concomitant]
     Route: 048
     Dates: start: 20100701
  10. ISONIAZID [Concomitant]
     Dosage: 300 MG, UNK
     Route: 048
     Dates: start: 20100701
  11. ITRACONAZOLE [Concomitant]
     Dosage: 10 ML, UNK
     Route: 048
     Dates: start: 20100701
  12. GLAKAY [Concomitant]
     Dosage: 45 MG, UNK
     Route: 048
     Dates: start: 20100701
  13. LIPITOR [Concomitant]
  14. OXATOMIDE [Concomitant]
     Dosage: 60 MG, UNK
     Route: 048
     Dates: start: 20100701

REACTIONS (8)
  - EPIGASTRIC DISCOMFORT [None]
  - THROMBOCYTOPENIA [None]
  - INFLAMMATION [None]
  - INFECTION [None]
  - NEUTROPENIA [None]
  - C-REACTIVE PROTEIN INCREASED [None]
  - BASOPHIL COUNT INCREASED [None]
  - MONOCYTE COUNT INCREASED [None]
